FAERS Safety Report 9058439 (Version 1)
Quarter: 2013Q1

REPORT INFORMATION
  Report Type: Spontaneous
  Country: US (occurrence: US)
  Receive Date: 20130211
  Receipt Date: 20130211
  Transmission Date: 20140127
  Serious: Yes (Disabling, Other)
  Sender: FDA-Public Use
  Company Number: US-ELI_LILLY_AND_COMPANY-US201301010306

PATIENT
  Sex: Female

DRUGS (10)
  1. CYMBALTA [Suspect]
     Indication: DEPRESSION
     Dosage: 60 MG, QD
     Dates: start: 20120919
  2. CYMBALTA [Suspect]
     Dosage: 60 MG, BID
  3. CYMBALTA [Suspect]
     Dosage: 60 MG, QD
  4. CYMBALTA [Suspect]
     Dosage: 60MG / 30MG, QOD
  5. ALENDRONATE [Concomitant]
     Indication: OSTEOPOROSIS
  6. ATORVASTATIN [Concomitant]
     Indication: BLOOD CHOLESTEROL INCREASED
  7. CALCIUM [Concomitant]
     Indication: OSTEOPOROSIS
  8. DIAZEPAM [Concomitant]
     Indication: ANXIETY
     Dosage: 5 MG, EACH EVENING
  9. MAXIVISION EYE FORMULA [Concomitant]
     Indication: VITREOUS FLOATERS
  10. SONATA [Concomitant]
     Indication: SLEEP DISORDER
     Dosage: 5 MG, UNK

REACTIONS (12)
  - Deafness [Not Recovered/Not Resolved]
  - Tinnitus [Unknown]
  - Fatigue [Recovered/Resolved]
  - Dizziness [Recovered/Resolved]
  - Nausea [Recovered/Resolved]
  - Headache [Recovered/Resolved]
  - Arthralgia [Recovered/Resolved]
  - Ear discomfort [Unknown]
  - Drug withdrawal syndrome [Recovered/Resolved]
  - Gastric disorder [Recovered/Resolved]
  - Tremor [Recovered/Resolved]
  - Drug withdrawal headache [Recovered/Resolved]
